FAERS Safety Report 5805294-3 (Version None)
Quarter: 2008Q3

REPORT INFORMATION
  Report Type: 
  Country: None (occurrence: None)
  Receive Date: 20080708
  Receipt Date: 20080702
  Transmission Date: 20090109
  Serious: Yes (Other)
  Sender: FDA-Public Use
  Company Number: S08-USA-02285-01

PATIENT
  Sex: Female

DRUGS (1)
  1. THYROID TAB [Suspect]
     Dates: start: 20080501

REACTIONS (1)
  - RHEUMATOID ARTHRITIS [None]
